FAERS Safety Report 5109280-0 (Version None)
Quarter: 2006Q3

REPORT INFORMATION
  Report Type: 
  Country: None (occurrence: None)
  Receive Date: 20060918
  Receipt Date: 20060829
  Transmission Date: 20061208
  Serious: Yes (Hospitalization, Other)
  Sender: FDA-Public Use
  Company Number: US200605004938

PATIENT
  Age: 59 Year
  Sex: Male

DRUGS (3)
  1. HUMULIN N [Suspect]
     Indication: DIABETES MELLITUS
     Dosage: 48 UNITS IN AM, 17 UNITS IN PM
     Dates: start: 19970101
  2. HUMULIN R [Suspect]
     Indication: DIABETES MELLITUS
     Dosage: 17 UNITS IN AM, 25 UNITS IN PM
     Dates: start: 19970101
  3. PREDNISONE TAB [Concomitant]

REACTIONS (13)
  - BLOOD CREATINE PHOSPHOKINASE INCREASED [None]
  - BLOOD GLUCOSE INCREASED [None]
  - FACIAL PAIN [None]
  - HEARING IMPAIRED [None]
  - HEPATIC ENZYME INCREASED [None]
  - LYMPHADENOPATHY [None]
  - MUSCULAR DYSTROPHY [None]
  - PAIN IN EXTREMITY [None]
  - SALIVARY GLAND NEOPLASM [None]
  - SIALOADENITIS [None]
  - TENOSYNOVITIS STENOSANS [None]
  - TOOTHACHE [None]
  - VEIN DISORDER [None]
